FAERS Safety Report 8969157 (Version 1)
Quarter: 2012Q4

REPORT INFORMATION
  Report Type: Report from Study
  Country: CA (occurrence: CA)
  Receive Date: 20121217
  Receipt Date: 20121217
  Transmission Date: 20130627
  Serious: Yes (Other)
  Sender: FDA-Public Use
  Company Number: CA-BAYER-2012-129514

PATIENT
  Age: 51 Year
  Sex: Female

DRUGS (4)
  1. DACARBAZINE [Suspect]
     Indication: HODGKIN^S LYMPHOMA
  2. DOXORUBICIN [Suspect]
     Indication: HODGKIN^S LYMPHOMA
  3. BLEOMYCIN [Suspect]
     Indication: HODGKIN^S LYMPHOMA
  4. VINBLASTINE [Suspect]
     Indication: HODGKIN^S LYMPHOMA

REACTIONS (1)
  - Acute lymphocytic leukaemia [None]
